FAERS Safety Report 26084746 (Version 1)
Quarter: 2025Q4

REPORT INFORMATION
  Report Type: Report from Study
  Country: US (occurrence: US)
  Receive Date: 20251124
  Receipt Date: 20251124
  Transmission Date: 20260117
  Serious: Yes (Other)
  Sender: AMGEN
  Company Number: US-AMGEN-USASL2025152177

PATIENT
  Age: 56 Year
  Sex: Male
  Weight: 105.22 kg

DRUGS (16)
  1. TAVNEOS [Suspect]
     Active Substance: AVACOPAN
     Indication: Granulomatosis with polyangiitis
     Dosage: 30 MILLIGRAM, BID
     Route: 048
     Dates: start: 20241029
  2. TAVNEOS [Suspect]
     Active Substance: AVACOPAN
     Dosage: 30 MILLIGRAM, BID
     Route: 048
     Dates: start: 20250703
  3. PREDNISONE [Suspect]
     Active Substance: PREDNISONE
     Indication: Granulomatosis with polyangiitis
     Dosage: UNK, INTERMITTENTLY
     Route: 048
     Dates: start: 20191019
  4. PREDNISONE [Suspect]
     Active Substance: PREDNISONE
     Dosage: 1 DOSAGE FORM, BID
     Route: 048
     Dates: start: 20240228
  5. RITUXAN [Concomitant]
     Active Substance: RITUXIMAB
     Indication: Granulomatosis with polyangiitis
     Dosage: 1000 MILLIGRAM, Q6MO, CONCENTRATE
     Route: 040
     Dates: start: 201912
  6. FOLIC ACID [Concomitant]
     Active Substance: FOLIC ACID
     Indication: Anaemia
     Dosage: 1 DOSAGE FORM, QD
     Route: 048
  7. IRON [Concomitant]
     Active Substance: IRON
     Indication: Anaemia
  8. CLARITIN-D 12 HOUR [Concomitant]
     Active Substance: LORATADINE\PSEUDOEPHEDRINE SULFATE
     Dosage: 1 DOSAGE FORM, AS NECESSARY EVERY 12 HOURS
     Route: 048
  9. ALBUTEROL SULFATE [Concomitant]
     Active Substance: ALBUTEROL SULFATE
     Dosage: 0.5 MILLILITER, TID
  10. BENADRYL [Concomitant]
     Active Substance: DIPHENHYDRAMINE HYDROCHLORIDE
     Dosage: 25 MILLIGRAM
     Route: 048
     Dates: start: 20231013
  11. DECADRON [Concomitant]
     Active Substance: DEXAMETHASONE
  12. TYLENOL [Concomitant]
     Active Substance: ACETAMINOPHEN
  13. AZATHIOPRINE [Concomitant]
     Active Substance: AZATHIOPRINE
     Dosage: UNK
     Dates: start: 20221031, end: 20230427
  14. CELLCEPT [Concomitant]
     Active Substance: MYCOPHENOLATE MOFETIL
     Dosage: UNK
     Dates: start: 20200219, end: 20210316
  15. HYDROXYCHLOROQUINE SULFATE [Concomitant]
     Active Substance: HYDROXYCHLOROQUINE SULFATE
     Dosage: UNK
     Dates: start: 20191018, end: 20221017
  16. METHOTREXATE [Concomitant]
     Active Substance: METHOTREXATE
     Indication: Granulomatosis with polyangiitis
     Dosage: 6 DOSAGE FORM, QWK
     Route: 048
     Dates: start: 20231027, end: 20240507

REACTIONS (8)
  - Granulomatosis with polyangiitis [Unknown]
  - Neuropathy peripheral [Not Recovered/Not Resolved]
  - Diabetes mellitus [Unknown]
  - Tinnitus [Not Recovered/Not Resolved]
  - Noninfective gingivitis [Unknown]
  - Pulpitis dental [Unknown]
  - Shoulder arthroplasty [Unknown]
  - Musculoskeletal discomfort [Unknown]
